FAERS Safety Report 23330946 (Version 2)
Quarter: 2024Q1

REPORT INFORMATION
  Report Type: Spontaneous
  Country: US (occurrence: US)
  Receive Date: 20231222
  Receipt Date: 20240206
  Transmission Date: 20240409
  Serious: No
  Sender: FDA-Public Use
  Company Number: US-HALEON-USCH2023063332

PATIENT
  Age: 66 Year
  Sex: Female

DRUGS (1)
  1. FLONASE [Suspect]
     Active Substance: FLUTICASONE PROPIONATE
     Indication: Product used for unknown indication
     Dosage: UNK
     Dates: start: 201801

REACTIONS (1)
  - Anosmia [Not Recovered/Not Resolved]

NARRATIVE: CASE EVENT DATE: 20180101
